FAERS Safety Report 21473914 (Version 1)
Quarter: 2022Q4

REPORT INFORMATION
  Report Type: Spontaneous
  Country: US (occurrence: US)
  Receive Date: 20221018
  Receipt Date: 20221018
  Transmission Date: 20230113
  Serious: No
  Sender: FDA-Public Use
  Company Number: US-BRISTOL-MYERS SQUIBB COMPANY-2022-120898

PATIENT
  Age: 71 Year
  Sex: Female

DRUGS (1)
  1. CAMZYOS [Suspect]
     Active Substance: MAVACAMTEN
     Indication: Product used for unknown indication
     Route: 048

REACTIONS (2)
  - Dyspepsia [Unknown]
  - Fatigue [Recovering/Resolving]

NARRATIVE: CASE EVENT DATE: 20221011
